FAERS Safety Report 4425586-2 (Version None)
Quarter: 2004Q3

REPORT INFORMATION
  Report Type: 
  Country: None (occurrence: None)
  Receive Date: 20040719
  Receipt Date: 20031002
  Transmission Date: 20050211
  Serious: Yes (Hospitalization)
  Sender: FDA-Public Use
  Company Number: 181845

PATIENT
  Age: 54 Year
  Sex: Female
  Weight: 47.1741 kg

DRUGS (9)
  1. AVONEX [Suspect]
     Indication: MULTIPLE SCLEROSIS
     Dosage: 30 MCG QW IM
     Route: 030
     Dates: start: 20011101, end: 20020101
  2. LIBRAX [Concomitant]
  3. DARVOCET-N 100 [Concomitant]
  4. VICODIN [Concomitant]
  5. DIAZEPAM [Concomitant]
  6. SOMA [Concomitant]
  7. PREMARIN [Concomitant]
  8. MENEST/OLD FORM [Concomitant]
  9. FLUOXETINE [Concomitant]

REACTIONS (11)
  - ASTHENIA [None]
  - CONDITION AGGRAVATED [None]
  - FACIAL BONES FRACTURE [None]
  - FATIGUE [None]
  - INTERVERTEBRAL DISC DISORDER [None]
  - JAW FRACTURE [None]
  - MALAISE [None]
  - MULTIPLE SCLEROSIS RELAPSE [None]
  - NAUSEA [None]
  - NUCLEAR MAGNETIC RESONANCE IMAGING ABNORMAL [None]
  - ROAD TRAFFIC ACCIDENT [None]
